FAERS Safety Report 20965853 (Version 1)
Quarter: 2022Q2

REPORT INFORMATION
  Report Type: Other
  Country: US (occurrence: None)
  Receive Date: 20220616
  Receipt Date: 20220616
  Transmission Date: 20220721
  Serious: Yes (Other)
  Sender: FDA-Public Use
  Company Number: US-ROCHE-2515528

PATIENT
  Sex: Female

DRUGS (7)
  1. PULMOZYME [Suspect]
     Active Substance: DORNASE ALFA
     Indication: Lung disorder
     Dosage: NEBULIZE THE CONTENTS OF 1 VIAL(S) TWICE A DAY
     Route: 055
  2. PULMOZYME [Suspect]
     Active Substance: DORNASE ALFA
     Indication: Asthma
     Dosage: TAKE 2.5 ML BY INHALATION DAILY VIA NEBULIZER
     Route: 055
  3. PULMOZYME [Suspect]
     Active Substance: DORNASE ALFA
     Indication: Bronchospasm
  4. PULMOZYME [Suspect]
     Active Substance: DORNASE ALFA
     Indication: Hypersensitivity pneumonitis
  5. PULMOZYME [Suspect]
     Active Substance: DORNASE ALFA
     Indication: Asthma
  6. PULMOZYME [Suspect]
     Active Substance: DORNASE ALFA
     Indication: Asthma
  7. PULMOZYME [Suspect]
     Active Substance: DORNASE ALFA
     Indication: Pulmonary oedema

REACTIONS (2)
  - Paralysis [Unknown]
  - Off label use [Unknown]
